FAERS Safety Report 5629726-9 (Version None)
Quarter: 2008Q1

REPORT INFORMATION
  Report Type: 
  Country: None (occurrence: None)
  Receive Date: 20080218
  Receipt Date: 19980914
  Transmission Date: 20080703
  Serious: Yes (Hospitalization)
  Sender: FDA-Public Use
  Company Number: US-MERCK-98080395

PATIENT
  Age: 61 Year
  Sex: Male

DRUGS (19)
  1. PRINIVIL [Suspect]
     Route: 048
     Dates: start: 19970401, end: 19970701
  2. PRINIVIL [Suspect]
     Route: 065
     Dates: start: 19970701, end: 19970801
  3. PRINIVIL [Suspect]
     Route: 065
     Dates: start: 19970801
  4. REMERON [Suspect]
     Indication: DEPRESSION
     Route: 048
     Dates: start: 19980501, end: 19980501
  5. PRILOSEC [Concomitant]
     Route: 065
  6. ZOCOR [Concomitant]
     Route: 065
     Dates: start: 19970417
  7. SUCRALFATE [Concomitant]
     Route: 065
  8. TENORMIN [Concomitant]
     Route: 065
  9. ISMO [Concomitant]
     Route: 065
  10. LORAZEPAM [Concomitant]
     Route: 065
     Dates: start: 19970201, end: 19980909
  11. HYPERICIN [Concomitant]
     Route: 065
     Dates: start: 19980101
  12. ASPIRIN [Concomitant]
     Route: 065
     Dates: start: 19980701
  13. ALPRAZOLAM [Concomitant]
     Route: 065
     Dates: start: 19980701
  14. K-DUR 10 [Concomitant]
     Route: 065
     Dates: start: 19970401, end: 19970701
  15. NORVASC [Concomitant]
     Route: 065
     Dates: start: 19970801
  16. NORVASC [Concomitant]
     Route: 065
     Dates: start: 19970401, end: 19970701
  17. DEPAKOTE [Concomitant]
     Route: 065
     Dates: start: 19970901, end: 19971001
  18. LUVOX [Concomitant]
     Route: 065
     Dates: start: 19971014, end: 19980831
  19. ZYBAN [Concomitant]
     Route: 065

REACTIONS (6)
  - BIPOLAR DISORDER [None]
  - CHEST PAIN [None]
  - DRUG INTERACTION [None]
  - NIGHTMARE [None]
  - RENAL ARTERY STENOSIS [None]
  - RENAL DISORDER [None]
